FAERS Safety Report 23742481 (Version 1)
Quarter: 2024Q2

REPORT INFORMATION
  Report Type: Spontaneous
  Country: US (occurrence: US)
  Receive Date: 20240415
  Receipt Date: 20240415
  Transmission Date: 20240716
  Serious: Yes (Hospitalization, Other)
  Sender: FDA-Public Use
  Company Number: US-SA-2024SA106784

PATIENT
  Age: 69 Year
  Sex: Female

DRUGS (11)
  1. PHENYTOIN [Suspect]
     Active Substance: PHENYTOIN
     Dosage: UNK
  2. PHENOBARBITAL [Suspect]
     Active Substance: PHENOBARBITAL
     Dosage: UNK
  3. ENOXAPARIN SODIUM [Suspect]
     Active Substance: ENOXAPARIN SODIUM
     Dosage: 40 MG, QD
  4. ENOXAPARIN SODIUM [Suspect]
     Active Substance: ENOXAPARIN SODIUM
     Dosage: 100 MG, QD
  5. CARBAMAZEPINE [Suspect]
     Active Substance: CARBAMAZEPINE
     Dosage: UNK
  6. APIXABAN [Suspect]
     Active Substance: APIXABAN
     Dosage: UNK
  7. NAPROXEN [Concomitant]
     Active Substance: NAPROXEN
     Dosage: UNK
  8. DEXAMETHASONE [Concomitant]
     Active Substance: DEXAMETHASONE
     Dosage: UNK
  9. RITALIN [Concomitant]
     Active Substance: METHYLPHENIDATE HYDROCHLORIDE
     Dosage: UNK
  10. COUMADIN [Concomitant]
     Active Substance: WARFARIN SODIUM
     Dosage: UNK
  11. HEPARIN [Concomitant]
     Active Substance: HEPARIN SODIUM
     Dosage: UNK

REACTIONS (29)
  - COVID-19 [Not Recovered/Not Resolved]
  - Arrhythmia [Not Recovered/Not Resolved]
  - Autism spectrum disorder [Unknown]
  - Myasthenia gravis [Unknown]
  - Pericardial effusion [Unknown]
  - Seizure [Unknown]
  - Pulmonary embolism [Not Recovered/Not Resolved]
  - Deep vein thrombosis [Unknown]
  - Thrombosis [Unknown]
  - Chest pain [Unknown]
  - Visual impairment [Unknown]
  - Myositis [Unknown]
  - Neoplasm [Unknown]
  - Bone pain [Unknown]
  - Faeces discoloured [Unknown]
  - Fibrin D dimer increased [Not Recovered/Not Resolved]
  - Cough [Unknown]
  - Diarrhoea [Unknown]
  - Contusion [Unknown]
  - Mean cell haemoglobin increased [Not Recovered/Not Resolved]
  - Eye disorder [Unknown]
  - Dyspnoea [Unknown]
  - Brain natriuretic peptide increased [Not Recovered/Not Resolved]
  - Full blood count abnormal [Not Recovered/Not Resolved]
  - Heart rate increased [Unknown]
  - Petechiae [Unknown]
  - Haemorrhage [Unknown]
  - Thrombocytosis [Unknown]
  - Drug ineffective [Unknown]

NARRATIVE: CASE EVENT DATE: 20210501
